FAERS Safety Report 10151753 (Version 1)
Quarter: 2014Q2

REPORT INFORMATION
  Report Type: Spontaneous
  Country: DE (occurrence: DE)
  Receive Date: 20140505
  Receipt Date: 20140505
  Transmission Date: 20141212
  Serious: Yes (Other)
  Sender: FDA-Public Use
  Company Number: DE-BIOGENIDEC-2014BI041696

PATIENT
  Sex: Female

DRUGS (1)
  1. TYSABRI [Suspect]
     Indication: MULTIPLE SCLEROSIS
     Route: 042

REACTIONS (5)
  - Osteomyelitis [Unknown]
  - Arthritis [Unknown]
  - Vertebral foraminal stenosis [Unknown]
  - Spondyloarthropathy [Unknown]
  - Cognitive disorder [Unknown]
